FAERS Safety Report 24150459 (Version 2)
Quarter: 2024Q3

REPORT INFORMATION
  Report Type: Report from Study
  Country: US (occurrence: US)
  Receive Date: 20240730
  Receipt Date: 20240823
  Transmission Date: 20241017
  Serious: Yes (Death, Hospitalization, Other)
  Sender: TAKEDA
  Company Number: US-TAKEDA-2024TUS074350

PATIENT
  Age: 54 Year
  Sex: Male

DRUGS (1)
  1. FRUQUINTINIB [Suspect]
     Active Substance: FRUQUINTINIB
     Indication: Colon cancer
     Dosage: 4 MILLIGRAM
     Route: 048

REACTIONS (2)
  - Death [Fatal]
  - Urinary tract obstruction [Not Recovered/Not Resolved]

NARRATIVE: CASE EVENT DATE: 20240719
